FAERS Safety Report 11914438 (Version 3)
Quarter: 2016Q1

REPORT INFORMATION
  Report Type: Report from Study
  Country: PL (occurrence: PL)
  Receive Date: 20160113
  Receipt Date: 20160126
  Transmission Date: 20160526
  Serious: Yes (Other)
  Sender: FDA-Public Use
  Company Number: PL-BAYER-2016-005467

PATIENT
  Age: 49 Year
  Sex: Female

DRUGS (2)
  1. ASPISOL [Suspect]
     Active Substance: ASPIRIN LYSINE
     Route: 045
  2. ACETYLSALICYLIC ACID (} 100 MG) [Suspect]
     Active Substance: ASPIRIN
     Indication: ALLERGY TEST
     Route: 048

REACTIONS (3)
  - Angioedema [None]
  - Dyspnoea [None]
  - Allergy test positive [None]
